FAERS Safety Report 5767580-5 (Version None)
Quarter: 2008Q2

REPORT INFORMATION
  Report Type: 
  Country: None (occurrence: None)
  Receive Date: 20080611
  Receipt Date: 20080611
  Transmission Date: 20081010
  Serious: Yes (Life-Threatening, Hospitalization)
  Sender: FDA-Public Use
  Company Number: None

PATIENT
  Age: 48 Year
  Sex: Female
  Weight: 57.7 kg

DRUGS (1)
  1. AVELOX [Suspect]
     Indication: EVIDENCE BASED TREATMENT
     Dosage: 400 MG Q24H IV
     Route: 042
     Dates: start: 20080608, end: 20080608

REACTIONS (7)
  - CHEST PAIN [None]
  - HYPERHIDROSIS [None]
  - HYPERTENSION [None]
  - RESPIRATORY RATE INCREASED [None]
  - SYNCOPE [None]
  - URTICARIA [None]
  - WHEEZING [None]
